FAERS Safety Report 19391142 (Version 3)
Quarter: 2021Q3

REPORT INFORMATION
  Report Type: Spontaneous
  Country: AU (occurrence: AU)
  Receive Date: 20210608
  Receipt Date: 20210722
  Transmission Date: 20211014
  Serious: Yes (Death, Hospitalization, Other)
  Sender: FDA-Public Use
  Company Number: AU-BRISTOL-MYERS SQUIBB COMPANY-BMS-2021-055235

PATIENT
  Age: 69 Year
  Sex: Male
  Weight: 67 kg

DRUGS (23)
  1. MORPHINE [Concomitant]
     Active Substance: MORPHINE
     Indication: PAIN
     Dosage: UNK (5?10 MG 1 HOURLY)
     Route: 048
     Dates: start: 20210602, end: 20210603
  2. TRAMADOL. [Concomitant]
     Active Substance: TRAMADOL
     Indication: PAIN
     Dosage: 50 MILLIGRAM, QID
     Route: 048
     Dates: start: 20210531, end: 20210603
  3. OXYCODONE [Concomitant]
     Active Substance: OXYCODONE
     Indication: PAIN
     Dosage: UNK (5?10 MG 1 HOURLY)
     Route: 048
     Dates: start: 20210602, end: 20210603
  4. APIXABAN [Concomitant]
     Active Substance: APIXABAN
     Indication: ANTICOAGULANT THERAPY
     Dosage: 5 MILLIGRAM, BID
     Route: 048
     Dates: start: 20210324, end: 20210604
  5. MORPHINE [Concomitant]
     Active Substance: MORPHINE
     Indication: DYSPNOEA
  6. OPDIVO [Suspect]
     Active Substance: NIVOLUMAB
     Dosage: 202 MILLIGRAM
     Route: 065
     Dates: start: 20210512
  7. PANTOPRAZOLE [Concomitant]
     Active Substance: PANTOPRAZOLE
     Indication: PRODUCT USED FOR UNKNOWN INDICATION
     Dosage: 40 MILLIGRAM, QD
     Route: 048
     Dates: start: 20210601, end: 20210604
  8. LACTULOSE. [Concomitant]
     Active Substance: LACTULOSE
     Indication: CONSTIPATION
     Dosage: 10 MILLILITER, BID
     Route: 048
     Dates: start: 20210531, end: 20210603
  9. HEPARIN [Concomitant]
     Active Substance: HEPARIN SODIUM
     Indication: EMBOLISM VENOUS
     Dosage: 5000 UNIT, TID
     Route: 058
     Dates: start: 20210601, end: 20210603
  10. METHADONE [Concomitant]
     Active Substance: METHADONE HYDROCHLORIDE
     Indication: PAIN
     Dosage: 2.5 MILLIGRAM (NOCTE)
     Route: 048
     Dates: start: 20210602, end: 20210603
  11. MORPHINE [Concomitant]
     Active Substance: MORPHINE
     Indication: PAIN
     Dosage: UNK (2.5?5 MG HOURLY)
     Route: 058
     Dates: start: 20210603, end: 20210604
  12. OPDIVO [Suspect]
     Active Substance: NIVOLUMAB
     Dosage: 3 MILLIGRAM/KILOGRAM, Q2WK (2 DOSES)
     Route: 042
     Dates: start: 20210422, end: 20210506
  13. YERVOY [Suspect]
     Active Substance: IPILIMUMAB
     Indication: MESOTHELIOMA
     Dosage: 1 MILLIGRAM/KILOGRAM, Q6WK (1 DOSE)
     Route: 042
     Dates: start: 20210422, end: 20210422
  14. DOCUSATE;SENNA [Concomitant]
     Active Substance: DOCUSATE\SENNOSIDES
     Indication: CONSTIPATION
     Dosage: 2 TAB, BID
     Route: 048
     Dates: end: 20210603
  15. OPDIVO [Suspect]
     Active Substance: NIVOLUMAB
     Indication: MESOTHELIOMA
     Dosage: UNK
     Route: 042
     Dates: start: 20210326
  16. POTASSIUM CHLORIDE. [Concomitant]
     Active Substance: POTASSIUM CHLORIDE
     Indication: HYPOKALAEMIA
     Dosage: 1200 MILLIGRAM (DAILY)
     Route: 048
     Dates: end: 20210604
  17. TRAMADOL. [Concomitant]
     Active Substance: TRAMADOL
     Dosage: 50 MILLIGRAM, QID
     Route: 042
     Dates: start: 20210531, end: 20210603
  18. PARACETAMOL [Concomitant]
     Active Substance: ACETAMINOPHEN
     Indication: PAIN
     Dosage: 1000 MILLIGRAM, QID (ORAL/IV)
     Route: 048
     Dates: end: 20210604
  19. MOVICOL [MACROGOL 4000;POTASSIUM CHLORIDE;SODIUM BICARBONATE;SODIUM CH [Concomitant]
     Indication: CONSTIPATION
     Dosage: UNK (2 SACHETS BD)
     Route: 048
     Dates: start: 20210531, end: 20210603
  20. PARACETAMOL [Concomitant]
     Active Substance: ACETAMINOPHEN
     Dosage: 1000 MILLIGRAM, QID (ORAL/IV)
     Route: 042
     Dates: start: 20210604
  21. PIPERACILLIN AND TAZOBACTAM [Concomitant]
     Active Substance: PIPERACILLIN SODIUM\TAZOBACTAM SODIUM
     Indication: PNEUMONIA
     Dosage: 4.5 GRAM, QID
     Route: 042
     Dates: start: 20210531, end: 20210602
  22. AMOXICILLIN + CLAVULANIC ACID [Concomitant]
     Active Substance: AMOXICILLIN\CLAVULANIC ACID
     Indication: INFECTION
     Dosage: 875 MILLIGRAM, BID
     Route: 048
     Dates: start: 20210602, end: 20210604
  23. MIDAZOLAM. [Concomitant]
     Active Substance: MIDAZOLAM
     Indication: ANXIETY
     Dosage: UNK (2?4 MG HOURLY)
     Route: 058
     Dates: start: 20210603, end: 20210604

REACTIONS (2)
  - Prescribed overdose [Unknown]
  - Death [Fatal]
